FAERS Safety Report 11378187 (Version 1)
Quarter: 2015Q3

REPORT INFORMATION
  Report Type: Spontaneous
  Country: US (occurrence: US)
  Receive Date: 20150811
  Receipt Date: 20150811
  Transmission Date: 20151125
  Serious: No
  Sender: FDA-Public Use
  Company Number: US-ELI_LILLY_AND_COMPANY-US201205005728

PATIENT
  Age: 68 Year
  Sex: Female

DRUGS (2)
  1. LETAIRIS [Concomitant]
     Active Substance: AMBRISENTAN
     Dosage: 10 MG, UNK
     Route: 048
     Dates: start: 20110412
  2. ADCIRCA [Suspect]
     Active Substance: TADALAFIL
     Dosage: UNK
     Dates: start: 20120508

REACTIONS (5)
  - Headache [Unknown]
  - Nasal congestion [Unknown]
  - Dyspnoea [Unknown]
  - Insomnia [Unknown]
  - Pain in extremity [Unknown]

NARRATIVE: CASE EVENT DATE: 20120508
